FAERS Safety Report 6457716-5 (Version None)
Quarter: 2009Q4

REPORT INFORMATION
  Report Type: 
  Country: None (occurrence: None)
  Receive Date: 20091125
  Receipt Date: 20091119
  Transmission Date: 20100525
  Serious: Yes (Other)
  Sender: FDA-Public Use
  Company Number: US-PFIZER INC-2009300841

PATIENT
  Sex: Female

DRUGS (2)
  1. LIPITOR [Suspect]
     Dosage: UNK
  2. TRICOR [Suspect]
     Dosage: UNK

REACTIONS (2)
  - DIARRHOEA [None]
  - MYOCARDIAL INFARCTION [None]
